FAERS Safety Report 23514249 (Version 1)
Quarter: 2024Q1

REPORT INFORMATION
  Report Type: Report from Study
  Country: EG (occurrence: EG)
  Receive Date: 20240212
  Receipt Date: 20240212
  Transmission Date: 20240409
  Serious: Yes (Other)
  Sender: FDA-Public Use
  Company Number: EG-002147023-NVSC2023EG083026

PATIENT
  Age: 47 Year
  Sex: Female

DRUGS (16)
  1. HYRIMOZ [Suspect]
     Active Substance: ADALIMUMAB-ADAZ
     Indication: Hidradenitis
     Dosage: 40 MG, Q2W (EVERY OTHER WEEK AND SOMETIMES HCP INCREASE THE DOSE 80 MG (2 HYRIMOZ 40 MG SYRINGE) AT
     Route: 058
     Dates: start: 20220513, end: 20221225
  2. HYRIMOZ [Suspect]
     Active Substance: ADALIMUMAB-ADAZ
     Dosage: 40 MG, Q2W (EVERY OTHER WEEK AND SOMETIMES HCP INCREASE THE DOSE 80 MG (2 HYRIMOZ 40 MG SYRINGE) AT
     Route: 058
     Dates: start: 20230416, end: 20231204
  3. COLCHICINE [Concomitant]
     Active Substance: COLCHICINE
     Indication: Product used for unknown indication
     Dosage: 1 DOSAGE FORM, Q12H (MORE THAN 2 YEARS)
     Route: 065
  4. COLCHICINE [Concomitant]
     Active Substance: COLCHICINE
     Dosage: 2 DOSAGE FORM, QD (MORE THAN 2 YEARS)
     Route: 065
  5. CONCOR 5 PLUS [Concomitant]
     Indication: Blood pressure abnormal
     Dosage: 1 DOSAGE FORM, QD (1 YEAR AGO)
     Route: 065
  6. GLUCOPHAGE [Concomitant]
     Active Substance: METFORMIN HYDROCHLORIDE
     Indication: Diabetes mellitus
     Dosage: 1 DOSAGE FORM, QD
     Route: 065
     Dates: start: 202209
  7. IMURAN [Concomitant]
     Active Substance: AZATHIOPRINE
     Indication: Hidradenitis
     Dosage: 1 DOSAGE FORM, Q12H (MORE THAN 2 YEARS)
     Route: 065
  8. IMURAN [Concomitant]
     Active Substance: AZATHIOPRINE
     Dosage: 2 DOSAGE FORM, QD (MORE THAN 2 YEARS)
     Route: 065
  9. OMEGA 3 [Concomitant]
     Active Substance: CAPSAICIN
     Indication: Vitamin supplementation
     Dosage: 1 DOSAGE FORM, QD (3 YEARS AGO)
     Route: 065
  10. Ossofortin [Concomitant]
     Indication: Bone disorder
     Dosage: 1 DOSAGE FORM, QD (5000) (FROM MANY YEARS AS PER BY PATIENT)
     Route: 065
  11. OSTEOCARE [Concomitant]
     Active Substance: CALCIUM\CHOLECALCIFEROL\MAGNESIUM\ZINC
     Indication: Product used for unknown indication
     Dosage: 1 DOSAGE FORM, QD (3 YEARS AGO)
     Route: 065
  12. SULFAMETHOXAZOLE\TRIMETHOPRIM [Concomitant]
     Active Substance: SULFAMETHOXAZOLE\TRIMETHOPRIM
     Indication: Abscess
     Dosage: UNK, QD (4 TO 5 YEARS AGO)
     Route: 065
  13. SULFAMETHOXAZOLE\TRIMETHOPRIM [Concomitant]
     Active Substance: SULFAMETHOXAZOLE\TRIMETHOPRIM
     Indication: Toothache
     Dosage: UNK
     Route: 065
  14. SULFAMETHOXAZOLE\TRIMETHOPRIM [Concomitant]
     Active Substance: SULFAMETHOXAZOLE\TRIMETHOPRIM
     Indication: Hidradenitis
  15. VITAMIN D NOS [Concomitant]
     Active Substance: VITAMIN D NOS
     Indication: Bone disorder
     Dosage: 1 DOSAGE FORM, QW FROM MANY YEARS AS PER BY PATIENT)
     Route: 065
  16. VITAMIN E [Concomitant]
     Active Substance: .ALPHA.-TOCOPHEROL
     Indication: Vitamin supplementation
     Dosage: 1 DOSAGE FORM, QD (3 YEARS AGO)
     Route: 065

REACTIONS (22)
  - Haemorrhage [Unknown]
  - Tooth disorder [Unknown]
  - Haemoglobin decreased [Recovering/Resolving]
  - Therapy cessation [Unknown]
  - Lymphoma [Unknown]
  - Tooth loss [Recovering/Resolving]
  - Product availability issue [Unknown]
  - Vaginal haemorrhage [Not Recovered/Not Resolved]
  - Uterine prolapse [Not Recovered/Not Resolved]
  - Tooth abscess [Recovering/Resolving]
  - Dental fistula [Recovering/Resolving]
  - Injection site pain [Recovered/Resolved]
  - Endometriosis [Unknown]
  - Condition aggravated [Unknown]
  - Nerve injury [Unknown]
  - Muscle spasms [Unknown]
  - Vein disorder [Unknown]
  - Vascular pain [Unknown]
  - Blood glucose increased [Unknown]
  - Blood calcium decreased [Unknown]
  - Drug ineffective [Not Recovered/Not Resolved]
  - Bone pain [Not Recovered/Not Resolved]

NARRATIVE: CASE EVENT DATE: 20220513
